FAERS Safety Report 7202457-X (Version None)
Quarter: 2010Q4

REPORT INFORMATION
  Report Type: 
  Country: None (occurrence: None)
  Receive Date: 20101229
  Receipt Date: 20101220
  Transmission Date: 20110411
  Serious: Yes (Hospitalization)
  Sender: FDA-Public Use
  Company Number: B0682968A

PATIENT
  Sex: Female
  Weight: 63 kg

DRUGS (11)
  1. TYKERB [Suspect]
     Indication: BREAST CANCER
     Dosage: 1250MG PER DAY
     Route: 048
     Dates: start: 20100419, end: 20100510
  2. TYKERB [Suspect]
     Dosage: 1250MG PER DAY
     Route: 048
     Dates: start: 20100524, end: 20100607
  3. TYKERB [Suspect]
     Dosage: 1000MG PER DAY
     Route: 048
     Dates: start: 20100621, end: 20100729
  4. XELODA [Suspect]
     Dosage: 3000MG PER DAY
     Route: 048
     Dates: start: 20100419, end: 20100510
  5. XELODA [Suspect]
     Dosage: 3000MG PER DAY
     Route: 048
     Dates: start: 20100524, end: 20100607
  6. XELODA [Suspect]
     Dosage: 2400MG PER DAY
     Route: 048
     Dates: start: 20100621, end: 20100729
  7. ANASTROZOLE [Concomitant]
     Indication: BREAST CANCER
     Dosage: 1MG PER DAY
     Route: 048
     Dates: start: 20070419
  8. AMLODIPINE [Concomitant]
     Indication: HYPERTENSION
     Route: 048
  9. LOBU [Concomitant]
     Indication: PAIN
     Route: 048
     Dates: start: 20070910
  10. MUCOSTA [Concomitant]
     Indication: GASTRITIS
     Route: 048
     Dates: start: 20070910
  11. MYONAL [Concomitant]
     Indication: PAIN
     Route: 048
     Dates: start: 20100204

REACTIONS (3)
  - DECREASED APPETITE [None]
  - DIARRHOEA [None]
  - RENAL IMPAIRMENT [None]
